FAERS Safety Report 7535524-1 (Version None)
Quarter: 2011Q2

REPORT INFORMATION
  Report Type: 
  Country: None (occurrence: None)
  Receive Date: 20110609
  Receipt Date: 20110428
  Transmission Date: 20111010
  Serious: No
  Sender: FDA-Public Use
  Company Number: US-BAYER-2011-036957

PATIENT
  Age: 22 Year
  Sex: Female

DRUGS (1)
  1. BEYAZ [Suspect]

REACTIONS (4)
  - OCULAR HYPERAEMIA [None]
  - EYE IRRITATION [None]
  - CONJUNCTIVITIS BACTERIAL [None]
  - DRY EYE [None]
